FAERS Safety Report 22164013 (Version 1)
Quarter: 2023Q2

REPORT INFORMATION
  Report Type: Report from Study
  Country: US (occurrence: US)
  Receive Date: 20230402
  Receipt Date: 20230402
  Transmission Date: 20230722
  Serious: No
  Sender: FDA-Public Use
  Company Number: US-002147023-NVSC2023US075213

PATIENT
  Sex: Female

DRUGS (1)
  1. COSENTYX [Suspect]
     Active Substance: SECUKINUMAB
     Indication: Psoriasis
     Dosage: 300 MG (START FORM STATES EVERY WEEK LOADING, PT STATES DOCTOR SAID EVERY 2 WEEKS)
     Route: 058

REACTIONS (4)
  - Pain in extremity [Unknown]
  - Mobility decreased [Unknown]
  - Limb discomfort [Unknown]
  - Sleep deficit [Unknown]
